FAERS Safety Report 9170389 (Version 1)
Quarter: 2013Q1

REPORT INFORMATION
  Report Type: Report from Study
  Country: CA (occurrence: CA)
  Receive Date: 20130319
  Receipt Date: 20130319
  Transmission Date: 20140127
  Serious: Yes (Hospitalization)
  Sender: FDA-Public Use
  Company Number: CA-JNJFOC-20130304962

PATIENT
  Age: 48 Year
  Sex: Female
  Weight: 38.1 kg

DRUGS (1)
  1. REMICADE [Suspect]
     Indication: COLITIS ULCERATIVE
     Route: 042
     Dates: end: 201209

REACTIONS (2)
  - Ileostomy [Recovering/Resolving]
  - Intestinal anastomosis [Recovering/Resolving]
